FAERS Safety Report 25749828 (Version 6)
Quarter: 2025Q4

REPORT INFORMATION
  Report Type: Report from Study
  Country: US (occurrence: US)
  Receive Date: 20250902
  Receipt Date: 20251218
  Transmission Date: 20260118
  Serious: Yes (Hospitalization, Other)
  Sender: RECORDATI
  Company Number: US-ORPHANEU-2025006123

PATIENT
  Age: 57 Year
  Sex: Female
  Weight: 151.02 kg

DRUGS (19)
  1. ISTURISA [Suspect]
     Active Substance: OSILODROSTAT PHOSPHATE
     Indication: Cushing^s syndrome
     Dosage: 6 MG, BID
     Route: 048
     Dates: start: 20240911
  2. ISTURISA [Suspect]
     Active Substance: OSILODROSTAT PHOSPHATE
     Indication: Endocrine disorder
     Dosage: 6 MG, BID (1 MG, BID (1 MG TAB), 5 MG  BID (5 MG TAB), FOR 5 MG LOT
     Route: 048
     Dates: start: 20250616
  3. ISTURISA [Suspect]
     Active Substance: OSILODROSTAT PHOSPHATE
     Dosage: 6 MG, BID (1 MG, BID (1 MG TAB), 5 MG BID (5 MG TAB), FOR 1 MG LOT
     Route: 048
     Dates: start: 20250616
  4. ISTURISA [Suspect]
     Active Substance: OSILODROSTAT PHOSPHATE
     Dosage: 6 MG BID (1 MG, BID (TABLET 1 MG), 5 MG BID (5 MG TABLET)
     Route: 048
     Dates: start: 20250616
  5. CHROMIUM [Concomitant]
     Active Substance: CHROMIC CHLORIDE\CHROMIUM
     Indication: Product used for unknown indication
     Dosage: 200 MICROGRAM, BID
     Route: 048
     Dates: start: 20200101
  6. PRASTERONE [Concomitant]
     Active Substance: PRASTERONE
     Indication: Product used for unknown indication
     Dosage: 10 MG, QD (TABLET 10 MG)
     Route: 048
     Dates: start: 20220613
  7. FARXIGA [Concomitant]
     Active Substance: DAPAGLIFLOZIN PROPANEDIOL
     Indication: Product used for unknown indication
     Dosage: 5 MG, QD (TABLET 5 MG)
     Route: 048
     Dates: start: 20220722
  8. LEVOTHYROXINE SODIUM [Concomitant]
     Active Substance: LEVOTHYROXINE SODIUM
     Indication: Product used for unknown indication
     Dosage: 50 MICROGRAM, BID
     Route: 048
     Dates: start: 20200101
  9. NALTREXONE HYDROCHLORIDE [Concomitant]
     Active Substance: NALTREXONE HYDROCHLORIDE
     Indication: Product used for unknown indication
     Dosage: 25 MG, EVERY DAY
     Route: 048
     Dates: start: 20200101
  10. OMEGA 3 [Concomitant]
     Active Substance: CAPSAICIN
     Indication: Product used for unknown indication
     Dosage: 1000 MG, EVERY DAY
     Route: 048
     Dates: start: 20200101
  11. PHENTERMINE HYDROCHLORIDE [Concomitant]
     Active Substance: PHENTERMINE HYDROCHLORIDE
     Indication: Product used for unknown indication
     Dosage: 37.5 MG, EVERY DAY
     Route: 048
     Dates: start: 20200101
  12. PLAQUENIL [Concomitant]
     Active Substance: HYDROXYCHLOROQUINE SULFATE
     Indication: Product used for unknown indication
     Dosage: 200 MG, EVERY DAY
     Route: 048
     Dates: start: 20200101
  13. PROGESTERONE [Concomitant]
     Active Substance: PROGESTERONE
     Indication: Product used for unknown indication
     Dosage: 100 MG, QD EXCEPT SUNDAY (CAPSULE 100 MG)
     Route: 048
     Dates: start: 20220613
  14. PROTONIX [Concomitant]
     Active Substance: PANTOPRAZOLE SODIUM
     Indication: Product used for unknown indication
     Dosage: 40 MG, EVERY DAY
     Route: 048
     Dates: start: 20200101
  15. TOPAMAX [Concomitant]
     Active Substance: TOPIRAMATE
     Indication: Product used for unknown indication
     Dosage: 75 MG, EVERY DAY
     Route: 048
     Dates: start: 20200101
  16. TRULANCE [Concomitant]
     Active Substance: PLECANATIDE
     Indication: Product used for unknown indication
     Dosage: 3 MG, EVERY OTHER MORNING (TABLET 3 MG)
     Route: 048
     Dates: start: 20220613
  17. VITAMIN C [Concomitant]
     Active Substance: ASCORBIC ACID
     Indication: Product used for unknown indication
     Dosage: 500 MG, EVERY DAY
     Route: 048
     Dates: start: 20200101
  18. VITAMIN D3 [Concomitant]
     Active Substance: CHOLECALCIFEROL
     Indication: Product used for unknown indication
     Dosage: 125 MICROGRAM, EVERY DAY
     Route: 048
     Dates: start: 20200101
  19. PROZAC [Concomitant]
     Active Substance: FLUOXETINE HYDROCHLORIDE
     Indication: Product used for unknown indication
     Dosage: 40 MG, EVERY DAY
     Route: 048
     Dates: start: 20200101

REACTIONS (7)
  - Cerebrovascular accident [Recovering/Resolving]
  - Atrial fibrillation [Recovering/Resolving]
  - Atrial fibrillation [Recovering/Resolving]
  - Pneumonia [Recovering/Resolving]
  - Bronchitis [Recovering/Resolving]
  - Gastroenteritis viral [Recovering/Resolving]
  - Cough [Recovering/Resolving]

NARRATIVE: CASE EVENT DATE: 20250812
